FAERS Safety Report 8462922 (Version 2)
Quarter: 2013Q3

REPORT INFORMATION
  Report Type: Report from Study
  Country: CZ (occurrence: CZ)
  Receive Date: 20120316
  Receipt Date: 20130816
  Transmission Date: 20140515
  Serious: Yes (Death, Other)
  Sender: FDA-Public Use
  Company Number: CZ-BAYER-2012-024223

PATIENT
  Age: 75 Year
  Sex: Male

DRUGS (1)
  1. NEXAVAR [Suspect]
     Indication: RENAL CANCER
     Dosage: 800 MG, QD
     Route: 048
     Dates: start: 20080227, end: 20080725

REACTIONS (6)
  - Renal cancer [Fatal]
  - Ileus [Unknown]
  - Large intestinal stenosis [None]
  - Peritonitis [None]
  - Sepsis [None]
  - Gastrointestinal inflammation [None]
